FAERS Safety Report 4287915-2 (Version None)
Quarter: 2004Q1

REPORT INFORMATION
  Report Type: 
  Country: None (occurrence: None)
  Receive Date: 20040209
  Receipt Date: 20031029
  Transmission Date: 20041129
  Serious: No
  Sender: FDA-Public Use
  Company Number: US-GLAXOSMITHKLINE-A0432098A

PATIENT
  Sex: Female

DRUGS (2)
  1. PAXIL [Suspect]
     Indication: DEPRESSION
     Dosage: 12.5MG PER DAY
     Route: 048
  2. INFLUENZA SHOT [Suspect]
     Route: 065

REACTIONS (4)
  - ABNORMAL DREAMS [None]
  - HYPERHIDROSIS [None]
  - NAUSEA [None]
  - VERTIGO [None]
